FAERS Safety Report 7082059-9 (Version None)
Quarter: 2010Q4

REPORT INFORMATION
  Report Type: 
  Country: None (occurrence: None)
  Receive Date: 20101103
  Receipt Date: 20101028
  Transmission Date: 20110411
  Serious: No
  Sender: FDA-Public Use
  Company Number: US-PFIZER INC-2010138185

PATIENT
  Sex: Female

DRUGS (1)
  1. ANTIVERT [Suspect]
     Indication: MENIERE'S DISEASE
     Dosage: 25 MG, 3X/DAY

REACTIONS (2)
  - DRUG INEFFECTIVE [None]
  - EXPIRED DRUG ADMINISTERED [None]
